FAERS Safety Report 25875967 (Version 1)
Quarter: 2025Q4

REPORT INFORMATION
  Report Type: Spontaneous
  Country: GB (occurrence: GB)
  Receive Date: 20251003
  Receipt Date: 20251003
  Transmission Date: 20260117
  Serious: Yes (Other)
  Sender: TEVA
  Company Number: GB-MHRA-TPP44646433C9764295YC1759222550671

PATIENT
  Age: 67 Year
  Sex: Male
  Weight: 98 kg

DRUGS (12)
  1. ATORVASTATIN [Suspect]
     Active Substance: ATORVASTATIN
     Indication: Blood cholesterol increased
     Dosage: AT NIGHT TO LOWER CHOLESTEROL
     Route: 065
     Dates: start: 20250624
  2. INDAPAMIDE [Concomitant]
     Active Substance: INDAPAMIDE
     Indication: Hypertension
     Dosage: EACH MORNING, TO REDUCE BLOOD PRESSURE
     Route: 065
     Dates: start: 20250530
  3. MOMETASONE [Concomitant]
     Active Substance: MOMETASONE
     Indication: Ill-defined disorder
     Dosage: APPLY 1-2 TIMES/DAY ON YOUR TRUNK
     Route: 065
     Dates: start: 20250530
  4. DOXAZOSIN [Concomitant]
     Active Substance: DOXAZOSIN MESYLATE
     Indication: Ill-defined disorder
     Route: 065
     Dates: start: 20250530
  5. SYMBICORT [Concomitant]
     Active Substance: BUDESONIDE\FORMOTEROL FUMARATE DIHYDRATE
     Indication: Ill-defined disorder
     Dosage: PRN
     Route: 065
     Dates: start: 20250530
  6. EUMOVATE [Concomitant]
     Active Substance: CLOBETASONE BUTYRATE
     Indication: Ill-defined disorder
     Dosage: APPLY 1-2 TIMES/DAY ON YOUR FACE, NECK AND FLEX...
     Route: 065
     Dates: start: 20250530
  7. RAMIPRIL [Concomitant]
     Active Substance: RAMIPRIL
     Indication: Ill-defined disorder
     Route: 065
     Dates: start: 20250530
  8. MINERAL OIL\PARAFFIN [Concomitant]
     Active Substance: MINERAL OIL\PARAFFIN
     Indication: Ill-defined disorder
     Dosage: USE AS DIRECTED AS A SOAP SUBSTITUTE
     Route: 065
     Dates: start: 20250530
  9. MONTELUKAST [Concomitant]
     Active Substance: MONTELUKAST
     Indication: Ill-defined disorder
     Dosage: AT NIGHT TO PREVENT ASTHMA
     Route: 065
     Dates: start: 20250530
  10. COCODAMOL [Concomitant]
     Active Substance: ACETAMINOPHEN\CODEINE PHOSPHATE
     Indication: Ill-defined disorder
     Dosage: WHEN REQUIRED
     Route: 065
     Dates: start: 20250530
  11. SPIRIVA [Concomitant]
     Active Substance: TIOTROPIUM BROMIDE MONOHYDRATE
     Indication: Ill-defined disorder
     Dosage: (REPLACE INHALER DEVI...
     Route: 065
     Dates: start: 20250721
  12. OMEPRAZOLE [Concomitant]
     Active Substance: OMEPRAZOLE
     Indication: Ill-defined disorder
     Route: 065
     Dates: start: 20250530

REACTIONS (4)
  - Myalgia [Recovered/Resolved]
  - Asthma [Recovering/Resolving]
  - Arthralgia [Recovered/Resolved]
  - Condition aggravated [Unknown]
